FAERS Safety Report 4759113-7 (Version None)
Quarter: 2005Q3

REPORT INFORMATION
  Report Type: 
  Country: None (occurrence: None)
  Receive Date: 20050831
  Receipt Date: 20050603
  Transmission Date: 20060218
  Serious: Yes (Death, Life-Threatening, Hospitalization)
  Sender: FDA-Public Use
  Company Number: ENTC2005-0149

PATIENT
  Age: 69 Year
  Sex: Male

DRUGS (7)
  1. STALEVO 100 [Suspect]
     Indication: PARKINSON'S DISEASE
     Dosage: 700 MG ORAL
     Route: 048
     Dates: start: 20050504, end: 20050528
  2. PRAVIDEL [Concomitant]
  3. NACOM RETARD [Concomitant]
  4. MADOPAR LT [Concomitant]
  5. GODAMED [Concomitant]
  6. SPASMEX [Concomitant]
  7. SEROQUEL [Concomitant]

REACTIONS (9)
  - HEPATIC FAILURE [None]
  - INTRAVASCULAR HAEMOLYSIS [None]
  - LOSS OF CONSCIOUSNESS [None]
  - METABOLIC ACIDOSIS [None]
  - MULTI-ORGAN FAILURE [None]
  - NEUROLEPTIC MALIGNANT SYNDROME [None]
  - RENAL FAILURE ACUTE [None]
  - RESPIRATORY FAILURE [None]
  - RHABDOMYOLYSIS [None]
